FAERS Safety Report 15301193 (Version 2)
Quarter: 2022Q1

REPORT INFORMATION
  Report Type: Report from Study
  Country: US (occurrence: US)
  Receive Date: 20180821
  Receipt Date: 20220317
  Transmission Date: 20220423
  Serious: Yes (Other)
  Sender: FDA-Public Use
  Company Number: US-KAMADA LIMITED-2018US004669

PATIENT
  Sex: Male

DRUGS (25)
  1. GLASSIA [Suspect]
     Active Substance: .ALPHA.1-PROTEINASE INHIBITOR HUMAN
     Indication: Alpha-1 antitrypsin deficiency
     Dosage: 3800 MILLIGRAM, 1/WEEK
     Route: 042
     Dates: start: 20180202, end: 201802
  2. GLASSIA [Suspect]
     Active Substance: .ALPHA.1-PROTEINASE INHIBITOR HUMAN
     Indication: Alpha-1 antitrypsin deficiency
     Dosage: 3800 MILLIGRAM, 1/WEEK
     Route: 042
     Dates: start: 20180202, end: 201802
  3. GLASSIA [Suspect]
     Active Substance: .ALPHA.1-PROTEINASE INHIBITOR HUMAN
     Dosage: 3800 MILLIGRAM, 1/WEEK
     Route: 042
     Dates: start: 20180222, end: 20180322
  4. GLASSIA [Suspect]
     Active Substance: .ALPHA.1-PROTEINASE INHIBITOR HUMAN
     Dosage: 3800 MILLIGRAM, 1/WEEK
     Route: 042
     Dates: start: 20180222, end: 20180322
  5. GLASSIA [Suspect]
     Active Substance: .ALPHA.1-PROTEINASE INHIBITOR HUMAN
     Dosage: 3800 MILLIGRAM, 1/WEEK
     Route: 042
     Dates: start: 20180329, end: 20180405
  6. GLASSIA [Suspect]
     Active Substance: .ALPHA.1-PROTEINASE INHIBITOR HUMAN
     Dosage: 3800 MILLIGRAM, 1/WEEK
     Route: 042
     Dates: start: 20180329, end: 20180405
  7. GLASSIA [Suspect]
     Active Substance: .ALPHA.1-PROTEINASE INHIBITOR HUMAN
     Dosage: 3800 MILLIGRAM, 1/WEEK
     Route: 042
     Dates: start: 20180413, end: 20180413
  8. GLASSIA [Suspect]
     Active Substance: .ALPHA.1-PROTEINASE INHIBITOR HUMAN
     Dosage: 3800 MILLIGRAM, 1/WEEK
     Route: 042
     Dates: start: 20180413, end: 20180413
  9. GLASSIA [Suspect]
     Active Substance: .ALPHA.1-PROTEINASE INHIBITOR HUMAN
     Dosage: 3800 MILLIGRAM, 1/WEEK
     Route: 042
     Dates: start: 20180419, end: 20180419
  10. GLASSIA [Suspect]
     Active Substance: .ALPHA.1-PROTEINASE INHIBITOR HUMAN
     Dosage: 3800 MILLIGRAM, 1/WEEK
     Route: 042
     Dates: start: 20180419, end: 20180419
  11. GLASSIA [Suspect]
     Active Substance: .ALPHA.1-PROTEINASE INHIBITOR HUMAN
     Dosage: 3800 MILLIGRAM, 1/WEEK
     Route: 042
     Dates: start: 20180426, end: 20180510
  12. GLASSIA [Suspect]
     Active Substance: .ALPHA.1-PROTEINASE INHIBITOR HUMAN
     Dosage: 3800 MILLIGRAM, 1/WEEK
     Route: 042
     Dates: start: 20180426, end: 20180510
  13. GLASSIA [Suspect]
     Active Substance: .ALPHA.1-PROTEINASE INHIBITOR HUMAN
     Dosage: 3800 MILLIGRAM, 1/WEEK
     Route: 042
     Dates: start: 20180426, end: 20180510
  14. GLASSIA [Suspect]
     Active Substance: .ALPHA.1-PROTEINASE INHIBITOR HUMAN
     Dosage: 3800 MILLIGRAM, 1/WEEK
     Route: 042
     Dates: start: 20180426, end: 20180510
  15. GLASSIA [Suspect]
     Active Substance: .ALPHA.1-PROTEINASE INHIBITOR HUMAN
     Dosage: 3800 MILLIGRAM, 1/WEEK
     Route: 042
     Dates: start: 20180517
  16. GLASSIA [Suspect]
     Active Substance: .ALPHA.1-PROTEINASE INHIBITOR HUMAN
     Dosage: 3800 MILLIGRAM, 1/WEEK
     Route: 042
     Dates: start: 20180517
  17. UMECLIDINIUM BROMIDE\VILANTEROL TRIFENATATE [Concomitant]
     Active Substance: UMECLIDINIUM BROMIDE\VILANTEROL TRIFENATATE
  18. AMLODIPINE [Concomitant]
     Active Substance: AMLODIPINE BESYLATE
  19. HYDROCHLOROTHIAZIDE [Concomitant]
     Active Substance: HYDROCHLOROTHIAZIDE
  20. VITAMIN A                          /00056001/ [Concomitant]
  21. VITAMIN B12 [Concomitant]
     Active Substance: CYANOCOBALAMIN
  22. VITAMIN B6 [Concomitant]
     Active Substance: PYRIDOXINE HYDROCHLORIDE
  23. VITAMIN D                          /00107901/ [Concomitant]
  24. SPIRULINA                          /01514001/ [Concomitant]
  25. MAGNESIUM [Concomitant]
     Active Substance: MAGNESIUM

REACTIONS (6)
  - Syncope [Unknown]
  - Limb injury [Unknown]
  - Therapy interrupted [Unknown]
  - Rash erythematous [Not Recovered/Not Resolved]
  - Rosacea [Not Recovered/Not Resolved]
  - Product availability issue [Unknown]
